FAERS Safety Report 8954240 (Version 2)
Quarter: 2012Q4

REPORT INFORMATION
  Report Type: 
  Country: US (occurrence: US)
  Receive Date: 20121207
  Receipt Date: 20121217
  Transmission Date: 20130627
  Serious: Yes (Hospitalization, Other)
  Sender: FDA-Public Use
  Company Number: PHEH2012US023909

PATIENT
  Sex: Female

DRUGS (1)
  1. TEKTURNA [Suspect]
     Dosage: UNK

REACTIONS (7)
  - Pharyngeal oedema [Unknown]
  - Eye swelling [Unknown]
  - Accident [Unknown]
  - Back disorder [Unknown]
  - Walking disability [Unknown]
  - Pain [Unknown]
  - Drug ineffective [Unknown]
